FAERS Safety Report 20653398 (Version 1)
Quarter: 2022Q1

REPORT INFORMATION
  Report Type: Spontaneous
  Country: US (occurrence: US)
  Receive Date: 20220330
  Receipt Date: 20220330
  Transmission Date: 20220423
  Serious: No
  Sender: FDA-Public Use
  Company Number: US-ALLERGAN-2207304US

PATIENT
  Sex: Female

DRUGS (14)
  1. UBRELVY [Suspect]
     Active Substance: UBROGEPANT
     Indication: Migraine
     Dosage: 100 MG, PRN
     Route: 048
     Dates: start: 2021
  2. VALTREX [Concomitant]
     Active Substance: VALACYCLOVIR HYDROCHLORIDE
     Indication: Oral herpes
     Dosage: UNK, PRN
  3. IBUPROFEN [Concomitant]
     Active Substance: IBUPROFEN
     Indication: Back pain
  4. VITAMINS [Concomitant]
     Active Substance: VITAMINS
  5. TYLENOL [Concomitant]
     Active Substance: ACETAMINOPHEN
     Indication: Back pain
  6. COENZYME Q10 [Concomitant]
     Active Substance: DIETARY SUPPLEMENT\UBIDECARENONE
  7. BLACK COHOSH [Concomitant]
     Active Substance: BLACK COHOSH
     Indication: Menopause
  8. BLACK CURRANT OIL [RIBES NIGRUM SEED OIL] [Concomitant]
     Indication: Menopause
  9. HESPERIDIN [Concomitant]
     Active Substance: HESPERIDIN
     Indication: Menopause
  10. RIBOFLAVIN [Concomitant]
     Active Substance: RIBOFLAVIN
  11. ZINC [Concomitant]
     Active Substance: ZINC
  12. VITAMIN D3 [Concomitant]
     Active Substance: CHOLECALCIFEROL
  13. SUPER EPA [Concomitant]
  14. LINOLEIADIC ACID [Concomitant]

REACTIONS (3)
  - Pruritus [Not Recovered/Not Resolved]
  - Erythema [Unknown]
  - Constipation [Recovered/Resolved]
